FAERS Safety Report 17889071 (Version 1)
Quarter: 2020Q2

REPORT INFORMATION
  Report Type: Spontaneous
  Country: ES (occurrence: ES)
  Receive Date: 20200612
  Receipt Date: 20200612
  Transmission Date: 20200714
  Serious: Yes (Other)
  Sender: FDA-Public Use
  Company Number: ES-ACCORD-185199

PATIENT
  Age: 63 Year
  Sex: Male

DRUGS (7)
  1. HYDROXYCHLOROQUINE [Suspect]
     Active Substance: HYDROXYCHLOROQUINE
     Indication: COVID-19 PNEUMONIA
     Dosage: LAST DOSE ADMINISTERED ON 23-MAY-2020
     Route: 048
     Dates: start: 20200518
  2. AMOXICILLIN/CLAVULANIC ACID [Suspect]
     Active Substance: AMOXICILLIN\CLAVULANIC ACID
     Indication: SUPERINFECTION MYCOBACTERIAL
     Dosage: STRENGTH:1,000 MG / 200 MG INJECTION
     Route: 042
     Dates: start: 20200518, end: 20200521
  3. TRIMBOW [Concomitant]
     Active Substance: BECLOMETHASONE DIPROPIONATE\FORMOTEROL FUMARATE\GLYCOPYRROLATE
     Indication: BRONCHITIS CHRONIC
     Dosage: STRENGTH:87 MICROGRAM / 5 MICROGRAM / 9 MICROGRAM, 1 INHALER OF 120 PULSATIONS
     Route: 055
     Dates: start: 20200214
  4. LOPINAVIR/RITONAVIR [Suspect]
     Active Substance: LOPINAVIR\RITONAVIR
     Indication: COVID-19 PNEUMONIA
     Dosage: STRENGTH:200 MG/50 MG TABLET
     Route: 048
     Dates: start: 20200518, end: 20200520
  5. AZITHROMYCIN ANHYDROUS. [Suspect]
     Active Substance: AZITHROMYCIN ANHYDROUS
     Indication: COVID-19 PNEUMONIA
     Dosage: LAST DOSE ADMINISTERED ON 23-MAY-2020
     Dates: start: 20200518
  6. ATROVENT [Concomitant]
     Active Substance: IPRATROPIUM BROMIDE
     Indication: BRONCHITIS CHRONIC
     Dosage: STRENGTH: 20 MICRO GRAMS,INHALATION SOLUTION IN PRESSURIZED CONTAINER,1?INHALER OF 200 DOSES.
     Route: 055
     Dates: start: 20190530
  7. FOLATE SODIUM/FOLIC ACID [Concomitant]
     Active Substance: FOLIC ACID
     Indication: ANAEMIA FOLATE DEFICIENCY
     Dosage: STRENGTH:5 MG 28 TABLETS
     Route: 048
     Dates: start: 20200501

REACTIONS (2)
  - Off label use [Unknown]
  - Abdominal discomfort [Recovered/Resolved]

NARRATIVE: CASE EVENT DATE: 20200519
